FAERS Safety Report 8152282-0 (Version None)
Quarter: 2012Q1

REPORT INFORMATION
  Report Type: 
  Country: None (occurrence: None)
  Receive Date: 20120221
  Receipt Date: 20120216
  Transmission Date: 20120608
  Serious: Yes (Other)
  Sender: FDA-Public Use
  Company Number: GB-PFIZER INC-2012042796

PATIENT
  Age: 83 Year
  Sex: Male

DRUGS (8)
  1. ATORVASTATIN [Concomitant]
     Indication: MYOCARDIAL ISCHAEMIA
     Dosage: 10 MG, 1X/DAY
     Dates: start: 19980101
  2. INSPRA [Suspect]
     Indication: CARDIAC FAILURE
     Dosage: 12.5 MG, 1X/DAY
     Route: 048
     Dates: start: 20110701, end: 20111206
  3. ACETYLSALICYLIC ACID [Concomitant]
     Indication: MYOCARDIAL ISCHAEMIA
     Dosage: 75 MG, 1X/DAY
     Route: 048
     Dates: start: 19980101
  4. LOPERAMIDE [Concomitant]
     Indication: IRRITABLE BOWEL SYNDROME
     Dosage: UNK
  5. PREDNISOLONE [Concomitant]
     Indication: DRESSLER'S SYNDROME
     Dosage: UNK
     Route: 048
     Dates: start: 19980101
  6. CAPTOPRIL [Concomitant]
     Indication: MYOCARDIAL ISCHAEMIA
     Dosage: 12.5 MG, 2X/DAY
     Route: 048
     Dates: start: 19980101
  7. DILTIAZEM [Concomitant]
     Indication: MYOCARDIAL ISCHAEMIA
     Dosage: 120 MG, 2X/DAY
     Dates: start: 19980101
  8. PARACETAMOL [Concomitant]
     Indication: OSTEOARTHRITIS
     Dosage: 500 MG, 2X/DAY

REACTIONS (1)
  - THROMBOCYTOPENIA [None]
